FAERS Safety Report 5836865-6 (Version None)
Quarter: 2008Q3

REPORT INFORMATION
  Report Type: 
  Country: None (occurrence: None)
  Receive Date: 20080806
  Receipt Date: 20080806
  Transmission Date: 20090109
  Serious: Yes (Life-Threatening)
  Sender: FDA-Public Use
  Company Number: None

PATIENT
  Sex: Female
  Weight: 57 kg

DRUGS (2)
  1. TRIMETHOPRIM + SULFAMETHOXAZOLE [Suspect]
     Indication: BRONCHITIS
     Dosage: 160-80MG BID PO
     Route: 048
     Dates: start: 20080612, end: 20080618
  2. TRIMETHOPRIM + SULFAMETHOXAZOLE [Suspect]
     Indication: CYSTITIS
     Dosage: 160-80MG BID PO
     Route: 048
     Dates: start: 20080612, end: 20080618

REACTIONS (2)
  - RASH ERYTHEMATOUS [None]
  - TOXIC EPIDERMAL NECROLYSIS [None]
